FAERS Safety Report 9212810 (Version 1)
Quarter: 2013Q1

REPORT INFORMATION
  Report Type: Spontaneous
  Country: US (occurrence: None)
  Receive Date: 20120824
  Receipt Date: 20120824
  Transmission Date: 20140127
  Serious: Yes (Hospitalization)
  Sender: FDA-Public Use
  Company Number: A-NJ2012-60384

PATIENT
  Age: 76 Year
  Sex: Female

DRUGS (2)
  1. VELETRI [Suspect]
     Indication: PULMONARY ARTERIAL HYPERTENSION
     Dosage: 22 NG/KG, PER MIN, IV DRIP
     Route: 042
     Dates: start: 20100714
  2. SILDENAFIL (SILDENAFIL CITRATE) [Concomitant]

REACTIONS (1)
  - Cardiac failure [None]
